FAERS Safety Report 4387496-9 (Version None)
Quarter: 2004Q2

REPORT INFORMATION
  Report Type: 
  Country: None (occurrence: None)
  Receive Date: 20040630
  Receipt Date: 20040428
  Transmission Date: 20050107
  Serious: No
  Sender: FDA-Public Use
  Company Number: US-GLAXOSMITHKLINE-A0508762A

PATIENT
  Sex: Female

DRUGS (5)
  1. ADVAIR HFA [Suspect]
     Indication: ASTHMA
     Dosage: 250MCG TWICE PER DAY
     Route: 055
     Dates: start: 20040408
  2. COMBIVENT [Concomitant]
  3. RHINOCORT [Concomitant]
  4. RANITIDINE [Concomitant]
  5. ATENOLOL [Concomitant]

REACTIONS (4)
  - DYSPNOEA [None]
  - LACRIMATION INCREASED [None]
  - NASAL CONGESTION [None]
  - SINUS DISORDER [None]
